FAERS Safety Report 13813628 (Version 1)
Quarter: 2017Q3

REPORT INFORMATION
  Report Type: Report from Study
  Country: None (occurrence: RO)
  Receive Date: 20170731
  Receipt Date: 20170731
  Transmission Date: 20171127
  Serious: Yes (Hospitalization)
  Sender: FDA-Public Use
  Company Number: RO-ABBVIE-17K-135-2054173-00

PATIENT
  Age: 66 Year
  Sex: Female

DRUGS (9)
  1. KETONAL [Concomitant]
     Active Substance: KETOPROFEN
     Indication: RHEUMATOID ARTHRITIS
     Route: 048
  2. ONBREZ [Concomitant]
     Active Substance: INDACATEROL
     Indication: ASTHMA
     Route: 055
  3. AERIUS [Concomitant]
     Active Substance: DESLORATADINE
     Indication: COUGH
     Route: 048
  4. METOTREXATE [Concomitant]
     Active Substance: METHOTREXATE SODIUM
     Indication: RHEUMATOID ARTHRITIS
     Route: 051
  5. CO PRENESSA [Concomitant]
     Indication: PRODUCT USED FOR UNKNOWN INDICATION
     Route: 048
  6. ASPIRIN. [Concomitant]
     Active Substance: ASPIRIN
     Indication: PAIN
     Route: 048
  7. HUMIRA [Suspect]
     Active Substance: ADALIMUMAB
     Indication: RHEUMATOID ARTHRITIS
     Route: 058
     Dates: start: 20090915, end: 201706
  8. HUMIRA [Suspect]
     Active Substance: ADALIMUMAB
     Route: 058
     Dates: start: 2017
  9. VENTOLIN [Concomitant]
     Active Substance: ALBUTEROL SULFATE
     Indication: ASTHMA
     Route: 055

REACTIONS (7)
  - Oral candidiasis [Recovered/Resolved]
  - Inappropriate schedule of drug administration [Recovered/Resolved]
  - Pyrexia [Recovered/Resolved]
  - Appendicectomy [Recovered/Resolved]
  - Inappropriate schedule of drug administration [Recovered/Resolved]
  - Abdominal pain [Recovering/Resolving]
  - Intervertebral disc protrusion [Recovered/Resolved]

NARRATIVE: CASE EVENT DATE: 2012
